FAERS Safety Report 25788885 (Version 2)
Quarter: 2025Q3

REPORT INFORMATION
  Report Type: Spontaneous
  Country: JP (occurrence: JP)
  Receive Date: 20250911
  Receipt Date: 20250919
  Transmission Date: 20251020
  Serious: Yes (Hospitalization, Other)
  Sender: ALEXION PHARMACEUTICALS
  Company Number: JP-ASTRAZENECA-202509JPN007052JP

PATIENT
  Age: 79 Year
  Sex: Male
  Weight: 60 kg

DRUGS (2)
  1. IMFINZI [Suspect]
     Active Substance: DURVALUMAB
     Indication: Hepatocellular carcinoma
     Route: 065
  2. IMJUDO [Suspect]
     Active Substance: TREMELIMUMAB\TREMELIMUMAB-ACTL
     Indication: Hepatocellular carcinoma

REACTIONS (2)
  - Immune-mediated enterocolitis [Recovered/Resolved]
  - Feeding disorder [Unknown]

NARRATIVE: CASE EVENT DATE: 20250430
